FAERS Safety Report 12487451 (Version 16)
Quarter: 2023Q4

REPORT INFORMATION
  Report Type: Other
  Country: CA (occurrence: CA)
  Receive Date: 20160622
  Receipt Date: 20231226
  Transmission Date: 20240109
  Serious: Yes (Other)
  Sender: FDA-Public Use
  Company Number: CA-002147023-PHHY2014CA072035

PATIENT
  Age: 56 Year
  Sex: Female

DRUGS (11)
  1. XOLAIR [Suspect]
     Active Substance: OMALIZUMAB
     Indication: Asthma
     Route: 058
     Dates: start: 20140605
  2. XOLAIR [Suspect]
     Active Substance: OMALIZUMAB
     Route: 058
     Dates: start: 20161011
  3. XOLAIR [Suspect]
     Active Substance: OMALIZUMAB
     Route: 058
     Dates: start: 20170116
  4. XOLAIR [Suspect]
     Active Substance: OMALIZUMAB
     Route: 058
     Dates: start: 20170713
  5. XOLAIR [Suspect]
     Active Substance: OMALIZUMAB
     Route: 058
     Dates: start: 20190306
  6. XOLAIR [Suspect]
     Active Substance: OMALIZUMAB
     Route: 058
     Dates: start: 20191115
  7. XOLAIR [Suspect]
     Active Substance: OMALIZUMAB
     Route: 058
     Dates: start: 20200205
  8. ADVAIR HFA [Concomitant]
     Active Substance: FLUTICASONE PROPIONATE\SALMETEROL XINAFOATE
     Indication: Product used for unknown indication
     Route: 065
  9. ALVESCO [Concomitant]
     Active Substance: CICLESONIDE
     Indication: Product used for unknown indication
     Route: 065
  10. PREDNISONE [Concomitant]
     Active Substance: PREDNISONE
     Indication: Product used for unknown indication
     Dosage: UNK
  11. VENTOLIN [Concomitant]
     Active Substance: ALBUTEROL SULFATE
     Indication: Product used for unknown indication
     Route: 065

REACTIONS (24)
  - Forced expiratory volume decreased [Not Recovered/Not Resolved]
  - Respiratory disorder [Unknown]
  - Respiratory tract infection [Not Recovered/Not Resolved]
  - Weight decreased [Unknown]
  - Upper respiratory tract infection [Unknown]
  - Wheezing [Unknown]
  - Illness [Unknown]
  - General physical health deterioration [Unknown]
  - Asthma [Unknown]
  - Palpitations [Unknown]
  - Heart rate increased [Recovered/Resolved]
  - Viral infection [Unknown]
  - Sensitivity to weather change [Unknown]
  - Seasonal allergy [Unknown]
  - Exposure to allergen [Unknown]
  - Vertigo [Unknown]
  - Middle insomnia [Unknown]
  - Dyspnoea [Unknown]
  - Cystitis interstitial [Unknown]
  - Bronchospasm [Unknown]
  - Nasopharyngitis [Unknown]
  - Fatigue [Unknown]
  - Headache [Unknown]
  - Cough [Unknown]

NARRATIVE: CASE EVENT DATE: 20140605
